FAERS Safety Report 19958019 (Version 1)
Quarter: 2021Q4

REPORT INFORMATION
  Report Type: Other
  Country: IT (occurrence: IT)
  Receive Date: 20211015
  Receipt Date: 20211015
  Transmission Date: 20220303
  Serious: Yes (Hospitalization)
  Sender: FDA-Public Use
  Company Number: None

PATIENT
  Age: 81 Year
  Sex: Male

DRUGS (1)
  1. RITUXIMAB [Suspect]
     Active Substance: RITUXIMAB
     Indication: Mantle cell lymphoma
     Route: 042
     Dates: start: 20210906

REACTIONS (3)
  - Oxygen saturation decreased [Unknown]
  - Hypersensitivity [Unknown]
  - Bronchospasm [Unknown]

NARRATIVE: CASE EVENT DATE: 20210906
